FAERS Safety Report 4667654-6 (Version None)
Quarter: 2005Q2

REPORT INFORMATION
  Report Type: 
  Country: None (occurrence: None)
  Receive Date: 20050517
  Receipt Date: 20050316
  Transmission Date: 20051028
  Serious: Yes (Hospitalization, Other)
  Sender: FDA-Public Use
  Company Number: PHEH2005US03229

PATIENT
  Age: 28 Year
  Sex: Male

DRUGS (3)
  1. GLEEVEC (IMATINAB) TABLET [Suspect]
     Indication: CHRONIC MYELOID LEUKAEMIA
     Dosage: 500 MG, QD,ORAL
     Route: 048
     Dates: start: 20050101, end: 20050314
  2. PROTONIX [Concomitant]
  3. LEXAPRO [Concomitant]

REACTIONS (2)
  - BLOOD CREATININE INCREASED [None]
  - PYREXIA [None]
